APPROVED DRUG PRODUCT: NIMBEX
Active Ingredient: CISATRACURIUM BESYLATE
Strength: EQ 2MG BASE/ML **Federal Register determination that product was not discontinued or withdrawn for safety or effectiveness reasons**
Dosage Form/Route: INJECTABLE;INJECTION
Application: N020551 | Product #001
Applicant: ABBVIE INC
Approved: Dec 15, 1995 | RLD: Yes | RS: No | Type: DISCN